FAERS Safety Report 4359112-3 (Version None)
Quarter: 2004Q2

REPORT INFORMATION
  Report Type: 
  Country: None (occurrence: None)
  Receive Date: 20040517
  Receipt Date: 20040517
  Transmission Date: 20050107
  Serious: Yes (Hospitalization)
  Sender: FDA-Public Use
  Company Number: None

PATIENT
  Age: 39 Year
  Sex: Male
  Weight: 85.4 kg

DRUGS (1)
  1. TENOFOVIR (GILEAD SCIENCES) [Suspect]
     Indication: HIV INFECTION
     Dates: start: 20030808, end: 20030820

REACTIONS (6)
  - BLOOD CREATININE INCREASED [None]
  - CARDIO-RESPIRATORY ARREST [None]
  - CHILLS [None]
  - PHARYNGOLARYNGEAL PAIN [None]
  - PYREXIA [None]
  - RASH MORBILLIFORM [None]
